FAERS Safety Report 13557581 (Version 1)
Quarter: 2017Q2

REPORT INFORMATION
  Report Type: Spontaneous
  Country: JP (occurrence: JP)
  Receive Date: 20170518
  Receipt Date: 20170518
  Transmission Date: 20170830
  Serious: Yes (Other)
  Sender: FDA-Public Use
  Company Number: JP-ASPEN PHARMA TRADING LIMITED US-AG-2017-003489

PATIENT
  Age: 34 Year
  Sex: Female
  Weight: 49.9 kg

DRUGS (2)
  1. DANAPAROID [Suspect]
     Active Substance: DANAPAROID
     Route: 058
  2. DANAPAROID [Suspect]
     Active Substance: DANAPAROID
     Indication: THROMBOSIS PROPHYLAXIS
     Route: 042

REACTIONS (3)
  - Live birth [Unknown]
  - Subchorionic haematoma [Unknown]
  - Exposure during pregnancy [Unknown]
